FAERS Safety Report 6069791-0 (Version None)
Quarter: 2009Q1

REPORT INFORMATION
  Report Type: 
  Country: None (occurrence: None)
  Receive Date: 20090204
  Receipt Date: 20090204
  Transmission Date: 20090719
  Serious: Yes (Other)
  Sender: FDA-Public Use
  Company Number: None

PATIENT
  Sex: Male
  Weight: 72.5755 kg

DRUGS (1)
  1. FORTICAL [Suspect]
     Indication: OSTEOPENIA
     Dosage: SPRAY DAILY NASAL
     Route: 045
     Dates: start: 20080901, end: 20090115

REACTIONS (5)
  - ABDOMINAL DISCOMFORT [None]
  - FATIGUE [None]
  - GYNAECOMASTIA [None]
  - HYPERHIDROSIS [None]
  - MASTITIS [None]
